FAERS Safety Report 7348464-8 (Version None)
Quarter: 2011Q1

REPORT INFORMATION
  Report Type: 
  Country: None (occurrence: None)
  Receive Date: 20110314
  Receipt Date: 20110309
  Transmission Date: 20110831
  Serious: Yes (Other)
  Sender: FDA-Public Use
  Company Number: DE-AMGEN-DEUSP2011010353

PATIENT
  Sex: Female
  Weight: 50 kg

DRUGS (7)
  1. ASPIRIN [Concomitant]
     Indication: THROMBOCYTOSIS
     Dosage: 100 MG, UNK
     Dates: start: 20070101
  2. DIOVAN [Concomitant]
     Indication: HYPERTENSION
     Dosage: 80 MG, UNK
     Dates: start: 20070101
  3. HYDROXYUREA [Concomitant]
     Indication: THROMBOCYTOSIS
     Dosage: 500 MG, UNK
     Dates: start: 20010101
  4. CALCIUM VERLA [Concomitant]
     Indication: OSTEOPOROSIS
     Dosage: 600 MG, UNK
     Dates: start: 20010101
  5. RANITIDINE HCL [Concomitant]
     Indication: DYSPEPSIA
     Dosage: 150 MG, UNK
     Dates: start: 20100901
  6. PROLIA [Suspect]
     Indication: OSTEOPOROSIS
     Dosage: UNK
     Dates: start: 20110114
  7. VIGANTOLETTEN [Concomitant]
     Dosage: UNK
     Dates: start: 20010101

REACTIONS (4)
  - MICTURITION URGENCY [None]
  - ARTHRITIS [None]
  - SKIN DISCOLOURATION [None]
  - PAIN IN EXTREMITY [None]
